FAERS Safety Report 9056056 (Version 1)
Quarter: 2013Q1

REPORT INFORMATION
  Report Type: Spontaneous
  Country: CN (occurrence: CN)
  Receive Date: 20130205
  Receipt Date: 20130205
  Transmission Date: 20140127
  Serious: Yes (Other)
  Sender: FDA-Public Use
  Company Number: CN-ABBOTT-13P-035-1044955-00

PATIENT
  Age: 5 Year
  Sex: Male

DRUGS (1)
  1. DEPAKINE CHRONO [Suspect]
     Indication: EPILEPSY
     Dosage: 500 MILLIGRAM (S); DAILY
     Route: 048
     Dates: start: 20130128

REACTIONS (5)
  - Loss of consciousness [Recovered/Resolved]
  - Epilepsy [Recovered/Resolved]
  - Wrong technique in drug usage process [Recovered/Resolved]
  - Foaming at mouth [Recovered/Resolved]
  - Convulsion [Recovered/Resolved]
